FAERS Safety Report 17201410 (Version 2)
Quarter: 2020Q1

REPORT INFORMATION
  Report Type: Spontaneous
  Country: US (occurrence: US)
  Receive Date: 20191226
  Receipt Date: 20200108
  Transmission Date: 20200409
  Serious: No
  Sender: FDA-Public Use
  Company Number: US-JNJFOC-20191228055

PATIENT
  Sex: Male

DRUGS (1)
  1. CONCERTA [Suspect]
     Active Substance: METHYLPHENIDATE HYDROCHLORIDE
     Indication: PRODUCT USED FOR UNKNOWN INDICATION
     Route: 065

REACTIONS (6)
  - Impulsive behaviour [Unknown]
  - Product substitution issue [Unknown]
  - Personal relationship issue [Unknown]
  - Disturbance in attention [Unknown]
  - Emotional disorder [Unknown]
  - Frustration tolerance decreased [Unknown]
